FAERS Safety Report 8010756-7 (Version None)
Quarter: 2011Q4

REPORT INFORMATION
  Report Type: 
  Country: None (occurrence: None)
  Receive Date: 20111228
  Receipt Date: 20111219
  Transmission Date: 20120403
  Serious: Yes (Other)
  Sender: FDA-Public Use
  Company Number: US-JNJFOC-20111000582

PATIENT
  Sex: Male
  Weight: 97.07 kg

DRUGS (17)
  1. METHOTREXATE [Concomitant]
     Indication: RHEUMATOID ARTHRITIS
     Route: 048
  2. MORPHINE [Concomitant]
     Indication: PAIN
     Route: 048
     Dates: start: 20090101
  3. AMBIEN [Concomitant]
     Indication: SLEEP DISORDER
     Route: 048
     Dates: start: 20090101
  4. ASPIRIN [Concomitant]
     Indication: CARDIAC DISORDER
     Route: 048
  5. SENOKOT [Concomitant]
     Indication: ABNORMAL FAECES
  6. REMICADE [Suspect]
     Indication: RHEUMATOID ARTHRITIS
     Route: 042
     Dates: start: 20110701
  7. CENTRUM SILVER [Concomitant]
     Indication: NUTRITIONAL SUPPORT
     Route: 048
  8. SPIRIVA [Concomitant]
     Indication: LUNG DISORDER
     Route: 048
     Dates: start: 20090101
  9. FUROSEMIDE [Concomitant]
     Indication: FLUID RETENTION
     Route: 048
  10. PREDNISONE TAB [Concomitant]
     Indication: BACK DISORDER
     Route: 048
     Dates: start: 20090101
  11. OXYCODONE HCL [Concomitant]
     Indication: PAIN
     Route: 048
     Dates: start: 20090101
  12. DIAZEPAM [Concomitant]
     Indication: PAIN
     Route: 048
     Dates: start: 20090101
  13. FOLIC ACID [Concomitant]
     Indication: RHEUMATOID ARTHRITIS
     Route: 048
  14. ADVAIR DISKUS 100/50 [Concomitant]
     Indication: LUNG DISORDER
     Route: 048
     Dates: start: 20090101
  15. ALBUTEROL [Concomitant]
     Indication: LUNG DISORDER
     Route: 055
     Dates: start: 20090101
  16. CALTRATE + VITAMIN D [Concomitant]
     Indication: NUTRITIONAL SUPPORT
     Dosage: 1 IN AM AND PM
     Route: 048
  17. OXYGEN [Concomitant]
     Indication: LUNG DISORDER
     Route: 045

REACTIONS (1)
  - MASS [None]
